FAERS Safety Report 9325403 (Version 1)
Quarter: 2013Q2

REPORT INFORMATION
  Report Type: Spontaneous
  Country: FR (occurrence: FR)
  Receive Date: 20130604
  Receipt Date: 20130604
  Transmission Date: 20140414
  Serious: Yes (Death)
  Sender: FDA-Public Use
  Company Number: FR-PFIZER INC-2013162849

PATIENT
  Age: 70 Year
  Sex: Male

DRUGS (1)
  1. ZYVOXID [Suspect]

REACTIONS (1)
  - Lactic acidosis [Fatal]
